FAERS Safety Report 4352309-8 (Version None)
Quarter: 2004Q2

REPORT INFORMATION
  Report Type: 
  Country: None (occurrence: None)
  Receive Date: 20040430
  Receipt Date: 20030602
  Transmission Date: 20050107
  Serious: Yes (Other)
  Sender: FDA-Public Use
  Company Number: 21437 (0)

PATIENT
  Age: 50 Year
  Sex: Female
  Weight: 63.5 kg

DRUGS (4)
  1. ALDARA [Suspect]
     Indication: CONDYLOMA ACUMINATUM
     Dosage: 1 DOSAGE FORMS (1 IN 1 DAY(S)), TOPICAL
     Route: 061
     Dates: start: 20030512, end: 20030526
  2. LITHIUM CARBONATE [Concomitant]
  3. SEROQUEL [Concomitant]
  4. KLONOPIN [Concomitant]

REACTIONS (6)
  - APPLICATION SITE OEDEMA [None]
  - APPLICATION SITE PAIN [None]
  - DEHYDRATION [None]
  - DYSURIA [None]
  - PAIN [None]
  - PYREXIA [None]
